FAERS Safety Report 4286978-8 (Version None)
Quarter: 2004Q1

REPORT INFORMATION
  Report Type: 
  Country: None (occurrence: None)
  Receive Date: 20040204
  Receipt Date: 20040123
  Transmission Date: 20041129
  Serious: Yes (Life-Threatening, Hospitalization)
  Sender: FDA-Public Use
  Company Number: 203815

PATIENT
  Age: 69 Year
  Sex: Male
  Weight: 85 kg

DRUGS (1)
  1. MABTHERA(RITUXIMAB) CONC FOR SOLUTION FOR INFUSION [Suspect]
     Indication: LYMPHOMA
     Dosage: 798 MG, 1/WEEK,
     Dates: start: 20030902, end: 20030916

REACTIONS (8)
  - CAPILLARY LEAK SYNDROME [None]
  - CARDIAC DISORDER [None]
  - HAEMOGLOBIN DECREASED [None]
  - LEFT VENTRICULAR FAILURE [None]
  - ORTHOPNOEA [None]
  - PULMONARY CONGESTION [None]
  - PULMONARY OEDEMA [None]
  - RESPIRATORY FAILURE [None]
